FAERS Safety Report 5695769-2 (Version None)
Quarter: 2008Q2

REPORT INFORMATION
  Report Type: 
  Country: None (occurrence: None)
  Receive Date: 20080407
  Receipt Date: 20080402
  Transmission Date: 20081010
  Serious: Yes (Other)
  Sender: FDA-Public Use
  Company Number: DE-AVENTIS-200810841DE

PATIENT
  Age: 37 Year
  Sex: Female

DRUGS (3)
  1. LANTUS [Suspect]
     Dosage: DOSE: NOT REPORTED
  2. INSUMAN                            /01164601/ [Suspect]
     Dosage: DOSE: NOT REPORTED
  3. APIDRA [Suspect]
     Dosage: DOSE: NOT REPORTED

REACTIONS (2)
  - ABNORMAL PRODUCT OF CONCEPTION [None]
  - DRUG EXPOSURE DURING PREGNANCY [None]
